FAERS Safety Report 13381415 (Version 3)
Quarter: 2018Q3

REPORT INFORMATION
  Report Type: Spontaneous
  Country: US (occurrence: US)
  Receive Date: 20170329
  Receipt Date: 20180824
  Transmission Date: 20181010
  Serious: Yes (Other)
  Sender: FDA-Public Use
  Company Number: US-ASTRAZENECA-2017SE29750

PATIENT
  Age: 27080 Day
  Sex: Male
  Weight: 84.8 kg

DRUGS (37)
  1. SIMVASTATIN. [Concomitant]
     Active Substance: SIMVASTATIN
     Route: 065
  2. LEVOCETIRIZINE DIHYDROCHLORIDE. [Concomitant]
     Active Substance: LEVOCETIRIZINE DIHYDROCHLORIDE
     Route: 065
  3. OMEPRAZOLE. [Suspect]
     Active Substance: OMEPRAZOLE
     Route: 065
     Dates: start: 20170205
  4. ALLOPURINOL. [Concomitant]
     Active Substance: ALLOPURINOL
     Route: 065
  5. LEVOTHYROXINE. [Concomitant]
     Active Substance: LEVOTHYROXINE
     Route: 065
     Dates: start: 20170217
  6. DICLOFENAC [Concomitant]
     Active Substance: DICLOFENAC
     Route: 065
  7. ENDOMETHASON [Concomitant]
     Active Substance: DEXAMETHASONE\HYDROCORTISONE ACETATE\PARAFORMALDEHYDE
     Route: 065
  8. RAMELTEON [Concomitant]
     Active Substance: RAMELTEON
  9. ROLAIDS [Concomitant]
     Active Substance: CALCIUM CARBONATE\MAGNESIUM HYDROXIDE
     Dosage: AS REQUIRED
     Route: 065
  10. LOSARTAN. [Concomitant]
     Active Substance: LOSARTAN
     Route: 065
     Dates: start: 20170206
  11. IBUPROFEN. [Concomitant]
     Active Substance: IBUPROFEN
  12. METHYLPREDNISOLONE. [Concomitant]
     Active Substance: METHYLPREDNISOLONE
  13. PEPCID AC (OTC) [Concomitant]
  14. ZANTAC [Concomitant]
     Active Substance: RANITIDINE HYDROCHLORIDE
     Dosage: ZANTAC 75
     Route: 065
  15. CALCIUM CARBONATE. [Concomitant]
     Active Substance: CALCIUM CARBONATE
     Dosage: AS REQUIRED
     Route: 065
  16. HYDROCODONE BITARTRATE AND ACETAMINOPHEN [Concomitant]
     Active Substance: ACETAMINOPHEN\HYDROCODONE BITARTRATE
     Dosage: 10?325
     Route: 065
     Dates: start: 20170214
  17. HYDROCODONE [Concomitant]
     Active Substance: HYDROCODONE
  18. CARVEDIOL [Concomitant]
     Active Substance: CARVEDILOL
  19. PERCOCET [Concomitant]
     Active Substance: ACETAMINOPHEN\OXYCODONE HYDROCHLORIDE
  20. ZANTAC [Concomitant]
     Active Substance: RANITIDINE HYDROCHLORIDE
     Route: 065
  21. MYLANTA [Concomitant]
     Active Substance: ALUMINUM HYDROXIDE\DIMETHICONE\MAGNESIUM HYDROXIDE
     Dosage: AS REQUIRED
     Route: 065
  22. INDOMETHACIN. [Concomitant]
     Active Substance: INDOMETHACIN
  23. TRAMADOL. [Concomitant]
     Active Substance: TRAMADOL
     Route: 065
     Dates: start: 20170203
  24. NEXIUM [Suspect]
     Active Substance: ESOMEPRAZOLE MAGNESIUM
     Route: 048
  25. NEXIUM [Suspect]
     Active Substance: ESOMEPRAZOLE MAGNESIUM
     Dosage: GENERIC (ESOMEPRAZOLE)
     Route: 065
  26. FLOMAX [Concomitant]
     Active Substance: TAMSULOSIN HYDROCHLORIDE
     Indication: FLUID RETENTION
     Route: 065
     Dates: start: 20170302
  27. AZITHROMYCIN ANHYDROUS. [Concomitant]
     Active Substance: AZITHROMYCIN ANHYDROUS
     Route: 065
  28. PEPTO?BISMOL [Concomitant]
     Active Substance: BISMUTH SUBSALICYLATE
     Dosage: AS REQUIRED
     Route: 065
  29. FUROSEMIDE. [Concomitant]
     Active Substance: FUROSEMIDE
  30. TRAZODONE [Concomitant]
     Active Substance: TRAZODONE HYDROCHLORIDE
     Route: 065
     Dates: start: 20170214
  31. LISINOPRIL. [Concomitant]
     Active Substance: LISINOPRIL
     Route: 065
  32. GABAPENTIN. [Concomitant]
     Active Substance: GABAPENTIN
  33. BRIMONIDINE [Concomitant]
     Active Substance: BRIMONIDINE TARTRATE
  34. LATANOPROST. [Concomitant]
     Active Substance: LATANOPROST
  35. LORATADINE. [Concomitant]
     Active Substance: LORATADINE
  36. TUMS [Concomitant]
     Active Substance: CALCIUM CARBONATE
     Dosage: AS REQUIRED
     Route: 065
  37. ASPIRIN. [Concomitant]
     Active Substance: ASPIRIN
     Dosage: AS REQUIRED
     Route: 065

REACTIONS (3)
  - Chronic kidney disease [Unknown]
  - Chest pain [Recovered/Resolved]
  - Dyspepsia [Recovered/Resolved]

NARRATIVE: CASE EVENT DATE: 20150227
